FAERS Safety Report 12864580 (Version 1)
Quarter: 2016Q4

REPORT INFORMATION
  Report Type: Report from Study
  Country: None (occurrence: DE)
  Receive Date: 20161020
  Receipt Date: 20161020
  Transmission Date: 20170207
  Serious: Yes (Other)
  Sender: FDA-Public Use
  Company Number: DE-ABBVIE-16K-062-1756793-00

PATIENT
  Age: 45 Year
  Sex: Male

DRUGS (1)
  1. HUMIRA [Suspect]
     Active Substance: ADALIMUMAB
     Indication: ANKYLOSING SPONDYLITIS
     Route: 058
     Dates: start: 201509, end: 201606

REACTIONS (2)
  - Benign hepatic neoplasm [Not Recovered/Not Resolved]
  - Adrenal neoplasm [Not Recovered/Not Resolved]

NARRATIVE: CASE EVENT DATE: 201609
